FAERS Safety Report 4953975-6 (Version None)
Quarter: 2006Q1

REPORT INFORMATION
  Report Type: 
  Country: None (occurrence: None)
  Receive Date: 20060323
  Receipt Date: 20060323
  Transmission Date: 20060701
  Serious: Yes (Hospitalization)
  Sender: FDA-Public Use
  Company Number: None

PATIENT
  Age: 77 Year
  Sex: Male

DRUGS (2)
  1. VELCADE [Suspect]
     Indication: DIFFUSE LARGE B-CELL LYMPHOMA
     Dosage: 1.3 MG/M2 IV DRIP DAY 1 + 4 OF 21 DAY CYCLE
     Route: 041
     Dates: start: 20060209
  2. CHOP [Suspect]
     Dosage: DAY 1 + 4 OF 21 DAY CYCLE
     Dates: start: 20060209

REACTIONS (2)
  - MUCOSAL INFLAMMATION [None]
  - PYREXIA [None]
